FAERS Safety Report 5021331-0 (Version None)
Quarter: 2006Q2

REPORT INFORMATION
  Report Type: 
  Country: None (occurrence: None)
  Receive Date: 20060608
  Receipt Date: 20050803
  Transmission Date: 20061013
  Serious: No
  Sender: FDA-Public Use
  Company Number: US-BRISTOL-MYERS SQUIBB COMPANY-13062153

PATIENT
  Sex: Female
  Weight: 57 kg

DRUGS (4)
  1. SINEMET [Suspect]
     Indication: PARKINSON'S DISEASE
     Route: 048
  2. ESTRADIOL [Concomitant]
     Route: 048
  3. CALCIUM GLUCONATE [Concomitant]
     Route: 048
  4. LAMISIL [Concomitant]
     Route: 048

REACTIONS (1)
  - INSOMNIA [None]
